FAERS Safety Report 7645831-X (Version None)
Quarter: 2011Q3

REPORT INFORMATION
  Report Type: 
  Country: None (occurrence: None)
  Receive Date: 20110729
  Receipt Date: 20110715
  Transmission Date: 20111222
  Serious: Yes (Death, Other)
  Sender: FDA-Public Use
  Company Number: US-WATSON-2011-07402

PATIENT
  Sex: Female
  Weight: 106 kg

DRUGS (9)
  1. FLUOXETINE [Concomitant]
     Indication: PRODUCT USED FOR UNKNOWN INDICATION
     Dosage: 3 TIMES DAILY
     Route: 065
     Dates: start: 20090727
  2. OXYCODONE/APAP                     /00867901/ [Concomitant]
     Indication: PRODUCT USED FOR UNKNOWN INDICATION
     Dosage: 5 MG-325 MG, 1-2 EVERY 4-6 H
     Route: 065
     Dates: start: 20100401
  3. MEDROXYPROGESTERONE [Concomitant]
     Indication: PRODUCT USED FOR UNKNOWN INDICATION
     Dosage: 3 TIMES DAILY
     Route: 065
     Dates: start: 20091009
  4. CEPHALEXIN [Concomitant]
     Indication: PRODUCT USED FOR UNKNOWN INDICATION
     Dosage: 4 TIMES DAILY
     Route: 065
     Dates: start: 20100329
  5. DIAZEPAM [Concomitant]
     Dosage: 3 TIMES DAILY
     Route: 065
     Dates: start: 20081027
  6. FENTANYL-50 [Suspect]
     Indication: PROCEDURAL PAIN
     Dosage: ^USED ONE FENTANYL PATCH,^  1 EVERY 3 DAYS
     Route: 062
     Dates: start: 20100401, end: 20100402
  7. DIAZEPAM [Concomitant]
     Indication: PRODUCT USED FOR UNKNOWN INDICATION
     Dosage: 2 TIMES DAILY
     Route: 065
     Dates: start: 20090727
  8. PENICILLIN [Concomitant]
     Indication: PRODUCT USED FOR UNKNOWN INDICATION
     Dosage: 4 TIMES DAILY
     Route: 065
     Dates: start: 20081202
  9. AMOXICILLIN [Concomitant]
     Indication: PRODUCT USED FOR UNKNOWN INDICATION
     Dosage: 6 DAILY
     Route: 065
     Dates: start: 20100317

REACTIONS (8)
  - DRUG LEVEL INCREASED [None]
  - DRUG PRESCRIBING ERROR [None]
  - TOXICITY TO VARIOUS AGENTS [None]
  - PULMONARY OEDEMA [None]
  - ACCIDENTAL OVERDOSE [None]
  - PULMONARY CONGESTION [None]
  - HEPATIC CONGESTION [None]
  - HEPATIC STEATOSIS [None]
